FAERS Safety Report 8274577-2 (Version None)
Quarter: 2012Q2

REPORT INFORMATION
  Report Type: 
  Country: None (occurrence: None)
  Receive Date: 20120411
  Receipt Date: 20090623
  Transmission Date: 20120825
  Serious: Yes (Hospitalization)
  Sender: FDA-Public Use
  Company Number: US-GLAXOSMITHKLINE-A0794856A

PATIENT
  Sex: Male

DRUGS (1)
  1. AVANDIA [Suspect]
     Indication: DIABETES MELLITUS
     Dosage: 8MG PER DAY
     Route: 048
     Dates: start: 20020201, end: 20070501

REACTIONS (4)
  - LEFT VENTRICULAR HYPERTROPHY [None]
  - CARDIOMEGALY [None]
  - DYSPNOEA [None]
  - CARDIAC DISORDER [None]
